FAERS Safety Report 4626830-9 (Version None)
Quarter: 2005Q2

REPORT INFORMATION
  Report Type: 
  Country: None (occurrence: None)
  Receive Date: 20050405
  Receipt Date: 20050324
  Transmission Date: 20051028
  Serious: Yes (Hospitalization)
  Sender: FDA-Public Use
  Company Number: US-JNJFOC-20041207479

PATIENT
  Sex: Female

DRUGS (2)
  1. MOTRIN [Suspect]
     Route: 049
  2. MOTRIN [Suspect]
     Route: 049

REACTIONS (4)
  - DYSPNOEA [None]
  - FIBROMYALGIA [None]
  - STEVENS-JOHNSON SYNDROME [None]
  - VOCAL CORD DISORDER [None]
